FAERS Safety Report 16060044 (Version 1)
Quarter: 2019Q2

REPORT INFORMATION
  Report Type: Spontaneous
  Country: US (occurrence: US)
  Receive Date: 20190311
  Receipt Date: 20190311
  Transmission Date: 20190711
  Serious: Yes (Other)
  Sender: FDA-Public Use
  Company Number: None

PATIENT
  Age: 57 Year
  Sex: Female
  Weight: 62.55 kg

DRUGS (3)
  1. SOMADERM TRANSDERMAL GEL [Suspect]
     Active Substance: HOMEOPATHICS
     Indication: SLEEP DISORDER
     Dosage: ?          OTHER STRENGTH:X;QUANTITY:3.5 OUNCE(S);?
     Route: 061
     Dates: start: 20181023, end: 20190103
  2. SOMADERM TRANSDERMAL GEL [Suspect]
     Active Substance: HOMEOPATHICS
     Indication: WEIGHT DECREASED
     Dosage: ?          OTHER STRENGTH:X;QUANTITY:3.5 OUNCE(S);?
     Route: 061
     Dates: start: 20181023, end: 20190103
  3. SOMADERM TRANSDERMAL GEL [Suspect]
     Active Substance: HOMEOPATHICS
     Indication: ALOPECIA
     Dosage: ?          OTHER STRENGTH:X;QUANTITY:3.5 OUNCE(S);?
     Route: 061
     Dates: start: 20181023, end: 20190103

REACTIONS (4)
  - Arthralgia [None]
  - Hypertension [None]
  - Tinnitus [None]
  - Malaise [None]

NARRATIVE: CASE EVENT DATE: 20190102
